FAERS Safety Report 5894850-2 (Version None)
Quarter: 2008Q3

REPORT INFORMATION
  Report Type: 
  Country: None (occurrence: None)
  Receive Date: 20080924
  Receipt Date: 20080626
  Transmission Date: 20090109
  Serious: No
  Sender: FDA-Public Use
  Company Number: BR-ASTRAZENECA-2008UW13089

PATIENT
  Age: 51 Year
  Sex: Male
  Weight: 82 kg

DRUGS (6)
  1. SEROQUEL [Suspect]
     Indication: MOOD ALTERED
     Route: 048
     Dates: start: 20080401, end: 20080501
  2. SEROQUEL [Suspect]
     Route: 048
     Dates: start: 20080501, end: 20080601
  3. SEROQUEL [Suspect]
     Dosage: 1.5 PILL/QD
     Route: 048
     Dates: start: 20080601
  4. VERAPAMIL [Concomitant]
     Indication: HYPERTENSION
     Route: 048
  5. LIPLESS [Concomitant]
     Indication: HYPERCHOLESTEROLAEMIA
     Route: 048
  6. MIRTAZAPINE [Concomitant]
     Indication: DEPRESSION
     Route: 048
     Dates: start: 20080501

REACTIONS (4)
  - DIZZINESS [None]
  - INCREASED APPETITE [None]
  - JOINT SWELLING [None]
  - WEIGHT INCREASED [None]
